FAERS Safety Report 10084624 (Version 1)
Quarter: 2014Q2

REPORT INFORMATION
  Report Type: Spontaneous
  Country: BR (occurrence: BR)
  Receive Date: 20140417
  Receipt Date: 20140417
  Transmission Date: 20141212
  Serious: Yes (Other)
  Sender: FDA-Public Use
  Company Number: BR-PFIZER INC-2014106097

PATIENT
  Age: 73 Year
  Sex: Female
  Weight: 71 kg

DRUGS (1)
  1. LYRICA [Suspect]
     Dosage: 1 TABLET (75 MG), DAILY
     Route: 048

REACTIONS (1)
  - Angiopathy [Unknown]
